FAERS Safety Report 17096699 (Version 2)
Quarter: 2019Q4

REPORT INFORMATION
  Report Type: Spontaneous
  Country: US (occurrence: US)
  Receive Date: 20191202
  Receipt Date: 20191202
  Transmission Date: 20200122
  Serious: No
  Sender: FDA-Public Use
  Company Number: US-ITALFARMACO SPA-2077331

PATIENT
  Age: 73 Year
  Sex: Male

DRUGS (11)
  1. FLOMAX [Concomitant]
     Active Substance: TAMSULOSIN HYDROCHLORIDE
  2. PRILOSEC [Concomitant]
     Active Substance: OMEPRAZOLE MAGNESIUM
  3. VITAMIN D [Concomitant]
     Active Substance: VITAMIN D NOS
  4. TIGLUTIK [Suspect]
     Active Substance: RILUZOLE
     Indication: AMYOTROPHIC LATERAL SCLEROSIS
     Route: 048
     Dates: start: 20190830, end: 20191024
  5. VITAMIN C [Concomitant]
     Active Substance: ASCORBIC ACID
  6. LUTEIN [Concomitant]
     Active Substance: LUTEIN
  7. ATORVASTATIN [Concomitant]
     Active Substance: ATORVASTATIN
  8. METOPROLOL. [Concomitant]
     Active Substance: METOPROLOL
  9. VIAGRA [Concomitant]
     Active Substance: SILDENAFIL CITRATE
  10. ASPIRIN. [Concomitant]
     Active Substance: ASPIRIN
  11. VITAMIN B12 [Concomitant]
     Active Substance: CYANOCOBALAMIN

REACTIONS (5)
  - Abdominal pain upper [Unknown]
  - Fatigue [Unknown]
  - Decreased appetite [Unknown]
  - Chromaturia [Not Recovered/Not Resolved]
  - Mucous stools [Unknown]

NARRATIVE: CASE EVENT DATE: 20191008
